FAERS Safety Report 7553616-8 (Version None)
Quarter: 2011Q2

REPORT INFORMATION
  Report Type: 
  Country: None (occurrence: None)
  Receive Date: 20110617
  Receipt Date: 20110608
  Transmission Date: 20111010
  Serious: Yes (Other)
  Sender: FDA-Public Use
  Company Number: US-PERRIGO-11US004739

PATIENT
  Sex: Male
  Weight: 58.957 kg

DRUGS (1)
  1. ACETAMINOPHEN-ASPIRIN-CAFFEINE 374 [Suspect]
     Indication: PRODUCT USED FOR UNKNOWN INDICATION
     Dosage: UNK, 13 CAPLETS, ONCE
     Route: 048
     Dates: start: 20110608, end: 20110608

REACTIONS (1)
  - OVERDOSE [None]
